FAERS Safety Report 11538490 (Version 1)
Quarter: 2015Q3

REPORT INFORMATION
  Report Type: Spontaneous
  Country: GB (occurrence: GB)
  Receive Date: 20150922
  Receipt Date: 20150922
  Transmission Date: 20151125
  Serious: Yes (Other)
  Sender: FDA-Public Use
  Company Number: GB-ALLERGAN-1519087US

PATIENT
  Age: 42 Year
  Sex: Female
  Weight: 85.27 kg

DRUGS (1)
  1. BOTOX [Suspect]
     Active Substance: ONABOTULINUMTOXINA
     Indication: HYPERTONIC BLADDER
     Dosage: UNK UNK, SINGLE
     Route: 051
     Dates: start: 20150318, end: 20150318

REACTIONS (5)
  - Drug ineffective [Unknown]
  - Urinary tract infection [Recovering/Resolving]
  - Pain in extremity [Not Recovered/Not Resolved]
  - Muscle twitching [Recovered/Resolved with Sequelae]
  - General physical health deterioration [Unknown]

NARRATIVE: CASE EVENT DATE: 20150322
